FAERS Safety Report 9236388 (Version 1)
Quarter: 2013Q2

REPORT INFORMATION
  Report Type: Spontaneous
  Country: US (occurrence: US)
  Receive Date: 20130417
  Receipt Date: 20130417
  Transmission Date: 20140414
  Serious: No
  Sender: FDA-Public Use
  Company Number: US-TEVA-398353USA

PATIENT
  Sex: Male
  Weight: 74.91 kg

DRUGS (8)
  1. NUVIGIL [Suspect]
     Indication: LETHARGY
     Route: 048
  2. ZYRTEC [Suspect]
  3. OXYCONTIN [Concomitant]
  4. XANAX [Concomitant]
  5. FLEXERIL [Concomitant]
  6. VALTREX [Concomitant]
  7. SUDAFED [Concomitant]
  8. DECONGESTANTS AND ANTIALLERGICS [Concomitant]

REACTIONS (5)
  - Abdominal discomfort [Unknown]
  - Mood swings [Unknown]
  - Irritability [Unknown]
  - Medication error [Recovered/Resolved]
  - Off label use [Recovered/Resolved]
